FAERS Safety Report 18783167 (Version 1)
Quarter: 2021Q1

REPORT INFORMATION
  Report Type: Spontaneous
  Country: US (occurrence: US)
  Receive Date: 20210125
  Receipt Date: 20210125
  Transmission Date: 20210419
  Serious: Yes (Death)
  Sender: FDA-Public Use
  Company Number: US-CHIESI USA, INC.-US-2021CHI000022

PATIENT

DRUGS (2)
  1. CANGRELOR [Suspect]
     Active Substance: CANGRELOR
     Indication: OFF LABEL USE
     Dosage: 0.75 UNK
     Route: 042
  2. CANGRELOR [Suspect]
     Active Substance: CANGRELOR
     Indication: AORTIC ANEURYSM REPAIR
     Dosage: 0.75 UNK
     Route: 042

REACTIONS (9)
  - Thrombocytopenia [Fatal]
  - Haematoma [Fatal]
  - Dyspnoea [Fatal]
  - Depressed level of consciousness [Fatal]
  - Muscular weakness [Fatal]
  - Acute kidney injury [Fatal]
  - Cardiac arrest [Fatal]
  - Off label use [Unknown]
  - Hypotension [Fatal]
